FAERS Safety Report 8112821-2 (Version None)
Quarter: 2012Q1

REPORT INFORMATION
  Report Type: 
  Country: None (occurrence: None)
  Receive Date: 20120203
  Receipt Date: 20120125
  Transmission Date: 20120608
  Serious: Yes (Other)
  Sender: FDA-Public Use
  Company Number: US-JNJFOC-20120112498

PATIENT
  Sex: Female
  Weight: 49.9 kg

DRUGS (5)
  1. REMICADE [Suspect]
     Indication: SACROILIITIS
     Route: 042
     Dates: start: 20110901
  2. LEVOTHYROXINE SODIUM [Concomitant]
     Indication: HYPERTHYROIDISM
     Route: 048
  3. LEXAPRO [Concomitant]
     Indication: ANXIETY
     Route: 048
  4. REMICADE [Suspect]
     Dosage: LAST DOSE WAS GIVEN IN OCT-2011 OR NOV-2011
     Route: 042
     Dates: start: 20110101, end: 20110101
  5. LEXAPRO [Concomitant]
     Indication: DEPRESSION
     Route: 048

REACTIONS (3)
  - PAIN OF SKIN [None]
  - PAIN [None]
  - FIBROMYALGIA [None]
